FAERS Safety Report 17519547 (Version 1)
Quarter: 2020Q1

REPORT INFORMATION
  Report Type: Spontaneous
  Country: NL (occurrence: NL)
  Receive Date: 20200310
  Receipt Date: 20200310
  Transmission Date: 20200409
  Serious: Yes (Hospitalization)
  Sender: FDA-Public Use
  Company Number: NL-TEVA-2020-NL-1196336

PATIENT
  Age: 69 Year
  Sex: Female
  Weight: 50 kg

DRUGS (2)
  1. FLUCONAZOL [Concomitant]
     Active Substance: FLUCONAZOLE
     Dosage: CAPSULE, 200 MG (MILLIGRAM)
  2. COTRIMOXAZOL [Suspect]
     Active Substance: SULFAMETHOXAZOLE\TRIMETHOPRIM
     Indication: PNEUMOCYSTIS JIROVECII PNEUMONIA
     Dosage: 1 DOSAGE FORMS DAILY; TABLET, 160/800 MG (MILLIGRAM), 1 TIMES A DAY
     Dates: start: 202002, end: 20200220

REACTIONS (7)
  - Nausea [Unknown]
  - Decreased appetite [Unknown]
  - Vomiting [Unknown]
  - Hyponatraemia [Unknown]
  - Renal failure [Unknown]
  - Hyperkalaemia [Unknown]
  - Dehydration [Unknown]

NARRATIVE: CASE EVENT DATE: 20200220
